FAERS Safety Report 13418290 (Version 2)
Quarter: 2017Q4

REPORT INFORMATION
  Report Type: Spontaneous
  Country: IL (occurrence: IL)
  Receive Date: 20170406
  Receipt Date: 20171010
  Transmission Date: 20180320
  Serious: Yes (Death)
  Sender: FDA-Public Use
  Company Number: IL-ALLERGAN-1713077US

PATIENT

DRUGS (1)
  1. CEFTAZIDIME;AVIBACTAM UNK [Suspect]
     Active Substance: AVIBACTAM SODIUM\CEFTAZIDIME
     Indication: PATHOGEN RESISTANCE
     Route: 065

REACTIONS (1)
  - Death [Fatal]
